FAERS Safety Report 4918971-3 (Version None)
Quarter: 2006Q1

REPORT INFORMATION
  Report Type: 
  Country: None (occurrence: None)
  Receive Date: 20060222
  Receipt Date: 20060216
  Transmission Date: 20060701
  Serious: Yes (Hospitalization)
  Sender: FDA-Public Use
  Company Number: FRPFM-E-20060016

PATIENT
  Age: 27 Year
  Sex: Female

DRUGS (3)
  1. CIBLOR [Suspect]
     Dosage: 1TAB PER DAY
     Route: 048
     Dates: start: 20050608, end: 20050608
  2. DOLIPRANE [Concomitant]
     Dosage: 1TAB UNKNOWN
     Route: 065
     Dates: start: 20050608, end: 20050608
  3. BRONCHOKOD [Concomitant]
     Dates: start: 20050608, end: 20050608

REACTIONS (7)
  - ANAPHYLACTOID REACTION [None]
  - DYSPHONIA [None]
  - DYSPNOEA [None]
  - EYELID OEDEMA [None]
  - OEDEMA PERIPHERAL [None]
  - PRURITUS GENERALISED [None]
  - URTICARIA [None]
